FAERS Safety Report 5955209-2 (Version None)
Quarter: 2008Q4

REPORT INFORMATION
  Report Type: 
  Country: None (occurrence: None)
  Receive Date: 20081117
  Receipt Date: 20081103
  Transmission Date: 20090506
  Serious: Yes (Death, Hospitalization, Other)
  Sender: FDA-Public Use
  Company Number: US-ROCHE-592993

PATIENT
  Sex: Male
  Weight: 127.7 kg

DRUGS (17)
  1. CAPECITABINE [Suspect]
     Indication: PANCREATIC CARCINOMA STAGE IV
     Dosage: FREQUENCY: BID DAILY FROM D1-D14.
     Route: 048
     Dates: start: 20080506, end: 20080926
  2. GEMCITABINE HCL [Suspect]
     Indication: PANCREATIC CARCINOMA STAGE IV
     Dosage: FREQUENCY D1 AND 8.
     Route: 042
     Dates: start: 20080506, end: 20080926
  3. METOCLOPRAMIDE [Concomitant]
  4. PRILOSEC [Concomitant]
  5. ASPIRIN [Concomitant]
  6. SIMVASTATIN [Concomitant]
  7. ALPRAZOLAM [Concomitant]
  8. LEXAPRO [Concomitant]
  9. REGLAN [Concomitant]
  10. PREVACID [Concomitant]
  11. INSULIN [Concomitant]
  12. OMEPRAZOLE [Concomitant]
  13. SPIRONOLACTONE [Concomitant]
  14. MS CONTIN [Concomitant]
  15. DOCUSATE [Concomitant]
  16. MIRALAX [Concomitant]
  17. SENNA [Concomitant]

REACTIONS (9)
  - ABDOMINAL PAIN [None]
  - ASCITES [None]
  - DISEASE PROGRESSION [None]
  - HEPATIC FAILURE [None]
  - NAUSEA [None]
  - PALMAR-PLANTAR ERYTHRODYSAESTHESIA SYNDROME [None]
  - RENAL FAILURE [None]
  - RESPIRATORY FAILURE [None]
  - VOMITING [None]
